FAERS Safety Report 7999764-X (Version None)
Quarter: 2011Q4

REPORT INFORMATION
  Report Type: 
  Country: None (occurrence: None)
  Receive Date: 20111222
  Receipt Date: 20111213
  Transmission Date: 20120403
  Serious: Yes (Hospitalization)
  Sender: FDA-Public Use
  Company Number: FR-AMGEN-FRASP2011067145

PATIENT
  Age: 56 Year
  Sex: Male

DRUGS (2)
  1. ENBREL [Suspect]
     Indication: PSORIASIS
     Dosage: 50 MG, WEEKLY
     Route: 058
     Dates: start: 20090401, end: 20111026
  2. RAPTIVA [Suspect]
     Indication: PSORIASIS
     Dosage: 1 DF, WEEKLY
     Route: 058
     Dates: start: 20081020, end: 20090209

REACTIONS (2)
  - MANTLE CELL LYMPHOMA [None]
  - LYMPHOCYTOSIS [None]
